FAERS Safety Report 21585979 (Version 16)
Quarter: 2025Q1

REPORT INFORMATION
  Report Type: Report from Study
  Country: GR (occurrence: GR)
  Receive Date: 20221111
  Receipt Date: 20250204
  Transmission Date: 20250409
  Serious: Yes (Life-Threatening, Hospitalization, Other)
  Sender: TAKEDA
  Company Number: GR-TAKEDA-2022TUS082193

PATIENT
  Age: 44 Year
  Sex: Female

DRUGS (20)
  1. PARATHYROID HORMONE [Suspect]
     Active Substance: PARATHYROID HORMONE
     Indication: Hypoparathyroidism
     Dosage: 75 MILLIGRAM, QD
     Dates: start: 20220704, end: 20221029
  2. PARATHYROID HORMONE [Suspect]
     Active Substance: PARATHYROID HORMONE
     Indication: Autoimmune hypoparathyroidism
     Dosage: 75 MICROGRAM, QD
     Dates: end: 20221029
  3. PARATHYROID HORMONE [Suspect]
     Active Substance: PARATHYROID HORMONE
     Dosage: 75 MILLIGRAM, QD
  4. PARATHYROID HORMONE [Suspect]
     Active Substance: PARATHYROID HORMONE
     Dosage: 75 MILLIGRAM, QD
  5. PARATHYROID HORMONE [Suspect]
     Active Substance: PARATHYROID HORMONE
     Dosage: 75 MICROGRAM, QD
  6. PARATHYROID HORMONE [Suspect]
     Active Substance: PARATHYROID HORMONE
     Dosage: 75 MICROGRAM, QD
  7. PARATHYROID HORMONE [Suspect]
     Active Substance: PARATHYROID HORMONE
  8. PARATHYROID HORMONE [Suspect]
     Active Substance: PARATHYROID HORMONE
  9. PARATHYROID HORMONE [Suspect]
     Active Substance: PARATHYROID HORMONE
  10. PARATHYROID HORMONE [Suspect]
     Active Substance: PARATHYROID HORMONE
  11. PARATHYROID HORMONE [Suspect]
     Active Substance: PARATHYROID HORMONE
     Dosage: 75 MILLIGRAM, QD
  12. PARATHYROID HORMONE [Suspect]
     Active Substance: PARATHYROID HORMONE
     Dosage: 75 MILLIGRAM, QD
  13. PARATHYROID HORMONE [Suspect]
     Active Substance: PARATHYROID HORMONE
  14. LEVOTHYROXINE [Concomitant]
     Active Substance: LEVOTHYROXINE
     Indication: Thyroidectomy
     Dosage: 88 MILLIGRAM, QD
  15. CALCIUM [Concomitant]
     Active Substance: CALCIUM
  16. MEDROL [Concomitant]
     Active Substance: METHYLPREDNISOLONE
     Indication: Multiple allergies
  17. BILAZ [Concomitant]
     Indication: Multiple allergies
  18. ALFACALCIDOL [Concomitant]
     Active Substance: ALFACALCIDOL
     Indication: Blood calcium abnormal
     Dosage: UNK UNK, QD
  19. ALFACALCIDOL [Concomitant]
     Active Substance: ALFACALCIDOL
     Indication: Supplementation therapy
  20. CALCIOFIX [Concomitant]
     Indication: Supplementation therapy

REACTIONS (26)
  - Pharyngeal hypoaesthesia [Recovered/Resolved]
  - Blood calcium increased [Not Recovered/Not Resolved]
  - Hypoaesthesia [Recovered/Resolved]
  - Blood calcium decreased [Not Recovered/Not Resolved]
  - Seizure [Recovered/Resolved]
  - Muscle contractions involuntary [Not Recovered/Not Resolved]
  - Vomiting [Recovered/Resolved]
  - Cardiomyopathy [Unknown]
  - Laryngospasm [Recovered/Resolved]
  - Hypoaesthesia oral [Not Recovered/Not Resolved]
  - Muscle spasms [Not Recovered/Not Resolved]
  - Hypocalcaemia [Unknown]
  - Bradycardia [Recovered/Resolved]
  - Oropharyngeal spasm [Recovered/Resolved]
  - Muscle twitching [Recovered/Resolved]
  - Product solubility abnormal [Not Recovered/Not Resolved]
  - Product physical issue [Not Recovered/Not Resolved]
  - Poor quality product administered [Unknown]
  - Malaise [Not Recovered/Not Resolved]
  - Vasoconstriction [Not Recovered/Not Resolved]
  - Product use issue [Unknown]
  - Drug ineffective [Unknown]
  - Gastrointestinal disorder [Not Recovered/Not Resolved]
  - Electrocardiogram abnormal [Unknown]
  - Product packaging issue [Unknown]
  - Incorrect dose administered [Unknown]

NARRATIVE: CASE EVENT DATE: 20220901
